FAERS Safety Report 8398828-9 (Version None)
Quarter: 2012Q2

REPORT INFORMATION
  Report Type: 
  Country: None (occurrence: None)
  Receive Date: 20120524
  Receipt Date: 20120514
  Transmission Date: 20120825
  Serious: Yes (Hospitalization)
  Sender: FDA-Public Use
  Company Number: 2012SP022010

PATIENT
  Age: 47 Year
  Sex: Male
  Weight: 71 kg

DRUGS (6)
  1. PEG-INTRON [Suspect]
     Indication: HEPATITIS C
     Dosage: 1.4 MCG/KG;QW;SC
     Route: 058
     Dates: start: 20120405, end: 20120419
  2. DICLOFENAC SODIUM [Concomitant]
  3. ALLEGRA [Concomitant]
  4. TELAVIC (ANTIVIRALS NOS) [Suspect]
     Indication: HEPATITIS C
     Dosage: 2250 MG;QD;PO
     Route: 048
     Dates: start: 20120405, end: 20120419
  5. LANSOPRAZOLE [Concomitant]
  6. REBETOL [Suspect]
     Indication: HEPATITIS C
     Dosage: 800 MG;QD;PO
     Route: 048
     Dates: start: 20120405, end: 20120419

REACTIONS (8)
  - THIRST [None]
  - ERYTHEMA [None]
  - MUSCULAR WEAKNESS [None]
  - PRURITUS [None]
  - BRADYCARDIA [None]
  - CONVULSION [None]
  - ASTHENIA [None]
  - MALAISE [None]
